FAERS Safety Report 5308816-4 (Version None)
Quarter: 2007Q2

REPORT INFORMATION
  Report Type: 
  Country: None (occurrence: None)
  Receive Date: 20070426
  Receipt Date: 20070417
  Transmission Date: 20071010
  Serious: Yes (Other)
  Sender: FDA-Public Use
  Company Number: FR-PFIZER INC-2007031315

PATIENT
  Age: 55 Year
  Sex: Female

DRUGS (1)
  1. DOSTINEX [Suspect]

REACTIONS (2)
  - AORTIC VALVE INCOMPETENCE [None]
  - RESPIRATORY FAILURE [None]
